FAERS Safety Report 6101015-8 (Version None)
Quarter: 2009Q1

REPORT INFORMATION
  Report Type: 
  Country: None (occurrence: None)
  Receive Date: 20090227
  Receipt Date: 20090224
  Transmission Date: 20090719
  Serious: Yes (Other)
  Sender: FDA-Public Use
  Company Number: JHP200900056

PATIENT
  Age: 5 Year
  Sex: Female

DRUGS (1)
  1. DELESTROGEN [Suspect]
     Dosage: TRANSPLACENTAL
     Route: 064

REACTIONS (3)
  - ABNORMAL BEHAVIOUR [None]
  - PATERNAL DRUGS AFFECTING FOETUS [None]
  - TRISOMY 21 [None]
